FAERS Safety Report 21093801 (Version 1)
Quarter: 2022Q3

REPORT INFORMATION
  Report Type: Report from Study
  Country: AT (occurrence: AT)
  Receive Date: 20220718
  Receipt Date: 20220718
  Transmission Date: 20221026
  Serious: Yes (Hospitalization)
  Sender: FDA-Public Use
  Company Number: AT-ABBVIE-22K-009-4466457-00

PATIENT
  Age: 44 Year
  Sex: Female

DRUGS (2)
  1. HUMIRA [Suspect]
     Active Substance: ADALIMUMAB
     Indication: Rheumatoid arthritis
     Route: 058
     Dates: start: 20220208, end: 202205
  2. METHOTREXATE [Concomitant]
     Active Substance: METHOTREXATE
     Indication: Product used for unknown indication

REACTIONS (13)
  - Joint swelling [Recovered/Resolved]
  - Bone marrow oedema [Recovered/Resolved]
  - Musculoskeletal stiffness [Recovered/Resolved]
  - Psoriasis [Recovered/Resolved]
  - Arthralgia [Recovered/Resolved]
  - Dizziness [Recovered/Resolved]
  - Joint swelling [Unknown]
  - Soft tissue inflammation [Unknown]
  - Peripheral swelling [Recovered/Resolved]
  - Therapeutic product effect decreased [Unknown]
  - Nausea [Recovered/Resolved]
  - Erythema [Recovered/Resolved]
  - Tachycardia [Recovered/Resolved]

NARRATIVE: CASE EVENT DATE: 20220401
